FAERS Safety Report 12835597 (Version 2)
Quarter: 2016Q4

REPORT INFORMATION
  Report Type: Not Available
  Country: CH (occurrence: CH)
  Receive Date: 20161011
  Receipt Date: 20161018
  Transmission Date: 20170207
  Serious: Yes (Hospitalization)
  Sender: FDA-Public Use
  Company Number: CH-MUNDIPHARMA DS AND PHARMACOVIGILANCE-GBR-2016-0040860

PATIENT
  Age: 54 Year
  Sex: Male

DRUGS (19)
  1. FENTANYL. [Concomitant]
     Active Substance: FENTANYL
  2. NEOCITRAN                          /00430301/ [Concomitant]
     Dosage: 1-2 DOSES
  3. VOLTAREN [Suspect]
     Active Substance: DICLOFENAC SODIUM
     Indication: PRODUCT USED FOR UNKNOWN INDICATION
     Dosage: 75 MG, UNK
     Route: 040
     Dates: start: 20160831, end: 20160831
  4. ZOFRAN [Concomitant]
     Active Substance: ONDANSETRON HYDROCHLORIDE
     Dosage: 4 MG, UNK
     Route: 040
     Dates: start: 20160831, end: 20160831
  5. OXYNORM [Suspect]
     Active Substance: OXYCODONE HYDROCHLORIDE
     Indication: PRODUCT USED FOR UNKNOWN INDICATION
     Dosage: 5 MG, PRN
     Route: 065
     Dates: start: 20160831, end: 20160904
  6. NEXIUM [Suspect]
     Active Substance: ESOMEPRAZOLE MAGNESIUM
     Indication: PRODUCT USED FOR UNKNOWN INDICATION
     Dosage: 40 MG, UNK
     Route: 048
     Dates: start: 20160831, end: 20160831
  7. BUPIVACAINE HYDROCHLORIDE W/FENTANYL CITRATE [Concomitant]
     Dosage: UNK
     Route: 008
     Dates: start: 20160831, end: 20160831
  8. ROCURONIUM [Concomitant]
     Active Substance: ROCURONIUM BROMIDE
     Dosage: 50 MG, UNK
     Route: 041
     Dates: start: 20160831, end: 20160831
  9. CEFUROXIME. [Suspect]
     Active Substance: CEFUROXIME
     Dosage: UNK
     Route: 065
     Dates: start: 2014, end: 2014
  10. BRUFEN                             /00109201/ [Suspect]
     Active Substance: IBUPROFEN
     Indication: PRODUCT USED FOR UNKNOWN INDICATION
     Dosage: 400 AND 600 MG
     Route: 048
     Dates: start: 20160831, end: 20160831
  11. PROPOFOL. [Concomitant]
     Active Substance: PROPOFOL
     Dosage: 200 MG, UNK
     Route: 041
     Dates: start: 20160831, end: 20160831
  12. EPHEDRIN [Concomitant]
     Active Substance: EPHEDRINE HYDROCHLORIDE
     Dosage: 5+10 MG
     Route: 041
     Dates: start: 20160831, end: 20160831
  13. PARACETAMOL [Concomitant]
     Active Substance: ACETAMINOPHEN
     Dosage: 1 G, UNK
  14. TARGIN [Suspect]
     Active Substance: NALOXONE HYDROCHLORIDE\OXYCODONE HYDROCHLORIDE
     Indication: PRODUCT USED FOR UNKNOWN INDICATION
     Dosage: 10/5 , PRN
     Route: 048
     Dates: start: 20160831, end: 20160904
  15. TEMESTA                            /00273201/ [Concomitant]
     Active Substance: LORAZEPAM
     Dosage: 2.5 MG, UNK
     Route: 060
     Dates: start: 20160831, end: 20160831
  16. TRAMAL [Concomitant]
     Active Substance: TRAMADOL
     Dosage: SINGLE DOSE (50MG?)
     Route: 048
     Dates: start: 20160901, end: 20160901
  17. DAFALGAN [Suspect]
     Active Substance: ACETAMINOPHEN
     Indication: PRODUCT USED FOR UNKNOWN INDICATION
     Dosage: 1 G, UNK
     Route: 048
     Dates: start: 20160831, end: 20160908
  18. DEXAMETHASON                       /00016001/ [Concomitant]
     Active Substance: DEXAMETHASONE
     Dosage: 8 MG, UNK
     Route: 040
     Dates: start: 20160831, end: 20160831
  19. CEFUROXIME. [Suspect]
     Active Substance: CEFUROXIME
     Indication: PROPHYLAXIS
     Dosage: 1.5 G, UNK
     Route: 040
     Dates: start: 20160831, end: 20160831

REACTIONS (2)
  - Acute generalised exanthematous pustulosis [Recovering/Resolving]
  - Drug reaction with eosinophilia and systemic symptoms [Recovering/Resolving]

NARRATIVE: CASE EVENT DATE: 201609
